FAERS Safety Report 5159612-2 (Version None)
Quarter: 2006Q4

REPORT INFORMATION
  Report Type: 
  Country: None (occurrence: None)
  Receive Date: 20061129
  Receipt Date: 20061124
  Transmission Date: 20070319
  Serious: Yes (Life-Threatening, Hospitalization)
  Sender: FDA-Public Use
  Company Number: PHBS2006JP18346

PATIENT
  Age: 67 Year
  Sex: Female

DRUGS (8)
  1. TEGRETOL [Suspect]
     Indication: BIPOLAR I DISORDER
     Route: 048
     Dates: start: 20060208
  2. LIMAS [Concomitant]
     Route: 048
  3. SOMELIN [Concomitant]
     Route: 048
  4. GOODMIN [Concomitant]
     Route: 048
  5. LEVOTOMIN [Concomitant]
     Route: 048
  6. TOLEDOMIN [Concomitant]
     Route: 048
  7. RAVONA [Concomitant]
     Route: 048
  8. DORAL [Concomitant]
     Route: 048

REACTIONS (4)
  - DRUG ERUPTION [None]
  - LYMPHOCYTE STIMULATION TEST POSITIVE [None]
  - RENAL FAILURE ACUTE [None]
  - SHOCK [None]
